FAERS Safety Report 24153223 (Version 3)
Quarter: 2024Q3

REPORT INFORMATION
  Report Type: Spontaneous
  Country: PL (occurrence: PL)
  Receive Date: 20240730
  Receipt Date: 20240919
  Transmission Date: 20241016
  Serious: Yes (Other)
  Sender: MYLAN
  Company Number: PL-BAUSCH-BL-2024-010507

PATIENT
  Age: 6 Month
  Sex: Male

DRUGS (74)
  1. LEVETIRACETAM [Suspect]
     Active Substance: LEVETIRACETAM
     Indication: Seizure
     Dosage: UNK
     Route: 065
  2. LEVETIRACETAM [Suspect]
     Active Substance: LEVETIRACETAM
     Indication: Partial seizures
  3. LEVETIRACETAM [Suspect]
     Active Substance: LEVETIRACETAM
     Indication: Generalised tonic-clonic seizure
  4. LEVETIRACETAM [Suspect]
     Active Substance: LEVETIRACETAM
     Indication: Myoclonic epilepsy
  5. LEVETIRACETAM [Suspect]
     Active Substance: LEVETIRACETAM
     Indication: Petit mal epilepsy
  6. TOPIRAMATE [Suspect]
     Active Substance: TOPIRAMATE
     Indication: Epilepsy
     Dosage: UNK
     Route: 065
  7. TOPIRAMATE [Suspect]
     Active Substance: TOPIRAMATE
     Indication: Petit mal epilepsy
  8. TOPIRAMATE [Suspect]
     Active Substance: TOPIRAMATE
     Indication: Partial seizures
  9. TOPIRAMATE [Suspect]
     Active Substance: TOPIRAMATE
     Indication: Generalised tonic-clonic seizure
  10. GABAPENTIN [Suspect]
     Active Substance: GABAPENTIN
     Indication: Epilepsy
     Dosage: UNK
     Route: 065
  11. GABAPENTIN [Suspect]
     Active Substance: GABAPENTIN
     Indication: Generalised tonic-clonic seizure
     Dosage: UNK
     Route: 065
  12. GABAPENTIN [Suspect]
     Active Substance: GABAPENTIN
     Indication: Petit mal epilepsy
  13. GABAPENTIN [Suspect]
     Active Substance: GABAPENTIN
     Indication: Partial seizures
  14. GABAPENTIN [Suspect]
     Active Substance: GABAPENTIN
     Indication: Myoclonic epilepsy
  15. LACOSAMIDE [Suspect]
     Active Substance: LACOSAMIDE
     Indication: Epilepsy
     Dosage: UNK
     Route: 065
  16. LACOSAMIDE [Suspect]
     Active Substance: LACOSAMIDE
     Indication: Partial seizures
     Dosage: UNK
     Route: 065
  17. LACOSAMIDE [Suspect]
     Active Substance: LACOSAMIDE
     Indication: Petit mal epilepsy
  18. LACOSAMIDE [Suspect]
     Active Substance: LACOSAMIDE
     Indication: Myoclonic epilepsy
  19. LACOSAMIDE [Suspect]
     Active Substance: LACOSAMIDE
     Indication: Generalised tonic-clonic seizure
  20. LAMOTRIGINE [Suspect]
     Active Substance: LAMOTRIGINE
     Indication: Epilepsy
     Dosage: UNK
     Route: 065
  21. LAMOTRIGINE [Suspect]
     Active Substance: LAMOTRIGINE
     Indication: Petit mal epilepsy
  22. LAMOTRIGINE [Suspect]
     Active Substance: LAMOTRIGINE
     Indication: Partial seizures
  23. LAMOTRIGINE [Suspect]
     Active Substance: LAMOTRIGINE
     Indication: Myoclonic epilepsy
  24. LAMOTRIGINE [Suspect]
     Active Substance: LAMOTRIGINE
     Indication: Generalised tonic-clonic seizure
  25. VALPROIC ACID [Suspect]
     Active Substance: VALPROIC ACID
     Indication: Epilepsy
     Dosage: UNK, RESTARTED
     Route: 065
  26. VALPROIC ACID [Suspect]
     Active Substance: VALPROIC ACID
     Indication: Generalised tonic-clonic seizure
     Dosage: UNK
     Route: 065
  27. VALPROIC ACID [Suspect]
     Active Substance: VALPROIC ACID
     Indication: Petit mal epilepsy
  28. VALPROIC ACID [Suspect]
     Active Substance: VALPROIC ACID
     Indication: Myoclonic epilepsy
  29. VALPROIC ACID [Suspect]
     Active Substance: VALPROIC ACID
     Indication: Partial seizures
  30. ETHOSUXIMIDE [Suspect]
     Active Substance: ETHOSUXIMIDE
     Indication: Epilepsy
     Dosage: UNK
     Route: 065
  31. ETHOSUXIMIDE [Suspect]
     Active Substance: ETHOSUXIMIDE
     Indication: Petit mal epilepsy
  32. ETHOSUXIMIDE [Suspect]
     Active Substance: ETHOSUXIMIDE
     Indication: Generalised tonic-clonic seizure
  33. ETHOSUXIMIDE [Suspect]
     Active Substance: ETHOSUXIMIDE
     Indication: Partial seizures
  34. ETHOSUXIMIDE [Suspect]
     Active Substance: ETHOSUXIMIDE
     Indication: Myoclonic epilepsy
  35. CLOBAZAM [Suspect]
     Active Substance: CLOBAZAM
     Indication: Epilepsy
     Dosage: UNK
     Route: 065
  36. CLOBAZAM [Suspect]
     Active Substance: CLOBAZAM
     Indication: Petit mal epilepsy
     Dosage: UNK
     Route: 065
  37. CLOBAZAM [Suspect]
     Active Substance: CLOBAZAM
     Indication: Myoclonic epilepsy
  38. CLOBAZAM [Suspect]
     Active Substance: CLOBAZAM
     Indication: Partial seizures
  39. CLOBAZAM [Suspect]
     Active Substance: CLOBAZAM
     Indication: Generalised tonic-clonic seizure
  40. NITRAZEPAM [Suspect]
     Active Substance: NITRAZEPAM
     Indication: Epilepsy
     Dosage: UNK
     Route: 065
  41. NITRAZEPAM [Suspect]
     Active Substance: NITRAZEPAM
     Indication: Petit mal epilepsy
     Dosage: UNK
     Route: 065
  42. NITRAZEPAM [Suspect]
     Active Substance: NITRAZEPAM
     Indication: Generalised tonic-clonic seizure
  43. NITRAZEPAM [Suspect]
     Active Substance: NITRAZEPAM
     Indication: Partial seizures
  44. NITRAZEPAM [Suspect]
     Active Substance: NITRAZEPAM
     Indication: Myoclonic epilepsy
  45. STIRIPENTOL [Suspect]
     Active Substance: STIRIPENTOL
     Indication: Epilepsy
     Dosage: UNK
     Route: 065
  46. STIRIPENTOL [Suspect]
     Active Substance: STIRIPENTOL
     Indication: Myoclonic epilepsy
     Dosage: UNK
     Route: 065
  47. STIRIPENTOL [Suspect]
     Active Substance: STIRIPENTOL
     Indication: Petit mal epilepsy
  48. STIRIPENTOL [Suspect]
     Active Substance: STIRIPENTOL
     Indication: Generalised tonic-clonic seizure
  49. STIRIPENTOL [Suspect]
     Active Substance: STIRIPENTOL
     Indication: Partial seizures
  50. BRIVARACETAM [Suspect]
     Active Substance: BRIVARACETAM
     Indication: Partial seizures
     Dosage: UNK
     Route: 065
  51. BRIVARACETAM [Suspect]
     Active Substance: BRIVARACETAM
     Indication: Generalised tonic-clonic seizure
     Dosage: UNK
     Route: 065
  52. BRIVARACETAM [Suspect]
     Active Substance: BRIVARACETAM
     Indication: Myoclonic epilepsy
  53. BRIVARACETAM [Suspect]
     Active Substance: BRIVARACETAM
     Indication: Petit mal epilepsy
  54. BRIVARACETAM [Suspect]
     Active Substance: BRIVARACETAM
     Indication: Epilepsy
  55. RUFINAMIDE [Suspect]
     Active Substance: RUFINAMIDE
     Indication: Epilepsy
     Dosage: UNK
     Route: 065
  56. RUFINAMIDE [Suspect]
     Active Substance: RUFINAMIDE
     Indication: Myoclonic epilepsy
     Dosage: UNK
     Route: 065
  57. RUFINAMIDE [Suspect]
     Active Substance: RUFINAMIDE
     Indication: Generalised tonic-clonic seizure
  58. RUFINAMIDE [Suspect]
     Active Substance: RUFINAMIDE
     Indication: Partial seizures
  59. RUFINAMIDE [Suspect]
     Active Substance: RUFINAMIDE
     Indication: Petit mal epilepsy
  60. CLONAZEPAM [Suspect]
     Active Substance: CLONAZEPAM
     Indication: Epilepsy
     Dosage: UNK
     Route: 065
  61. CLONAZEPAM [Suspect]
     Active Substance: CLONAZEPAM
     Indication: Generalised tonic-clonic seizure
     Dosage: UNK
     Route: 065
  62. CLONAZEPAM [Suspect]
     Active Substance: CLONAZEPAM
     Indication: Myoclonic epilepsy
  63. CLONAZEPAM [Suspect]
     Active Substance: CLONAZEPAM
     Indication: Petit mal epilepsy
  64. CLONAZEPAM [Suspect]
     Active Substance: CLONAZEPAM
     Indication: Partial seizures
  65. PERAMPANEL [Suspect]
     Active Substance: PERAMPANEL
     Indication: Epilepsy
     Dosage: UNK
     Route: 065
  66. PERAMPANEL [Suspect]
     Active Substance: PERAMPANEL
     Indication: Petit mal epilepsy
     Dosage: UNK
     Route: 065
  67. PERAMPANEL [Suspect]
     Active Substance: PERAMPANEL
     Indication: Partial seizures
  68. PERAMPANEL [Suspect]
     Active Substance: PERAMPANEL
     Indication: Myoclonic epilepsy
  69. PERAMPANEL [Suspect]
     Active Substance: PERAMPANEL
     Indication: Generalised tonic-clonic seizure
  70. FENFLURAMINE [Suspect]
     Active Substance: FENFLURAMINE
     Indication: Epilepsy
     Dosage: UNK
     Route: 065
  71. FENFLURAMINE [Suspect]
     Active Substance: FENFLURAMINE
     Indication: Partial seizures
     Dosage: UNK
     Route: 065
  72. FENFLURAMINE [Suspect]
     Active Substance: FENFLURAMINE
     Indication: Myoclonic epilepsy
  73. FENFLURAMINE [Suspect]
     Active Substance: FENFLURAMINE
     Indication: Petit mal epilepsy
  74. FENFLURAMINE [Suspect]
     Active Substance: FENFLURAMINE
     Indication: Generalised tonic-clonic seizure

REACTIONS (2)
  - Therapy partial responder [Unknown]
  - Off label use [Unknown]
